FAERS Safety Report 9207463 (Version 2)
Quarter: 2013Q2

REPORT INFORMATION
  Report Type: Report from Study
  Country: IN (occurrence: IN)
  Receive Date: 20130403
  Receipt Date: 20130424
  Transmission Date: 20140414
  Serious: Yes (Other)
  Sender: FDA-Public Use
  Company Number: IN-ROCHE-1209440

PATIENT
  Sex: 0

DRUGS (4)
  1. CAPECITABINE [Suspect]
     Indication: RECTAL CANCER
     Dosage: ON DAY 1-14 AND 25-38
     Route: 048
  2. OXALIPLATIN [Suspect]
     Indication: RECTAL CANCER
     Dosage: ON DAY 1 AND DAY 29
     Route: 042
  3. LEUCOVORIN [Suspect]
     Indication: RECTAL CANCER
     Dosage: FROM D1 TO 5 AND D29 TO 33
     Route: 042
  4. FLUOROURACIL [Suspect]
     Indication: RECTAL CANCER
     Dosage: FROM D1 TO 5 AND D29 TO 33
     Route: 042

REACTIONS (3)
  - Haematotoxicity [Unknown]
  - Gastrointestinal toxicity [Unknown]
  - Skin toxicity [Unknown]
